FAERS Safety Report 8594258-5 (Version None)
Quarter: 2012Q3

REPORT INFORMATION
  Report Type: 
  Country: None (occurrence: None)
  Receive Date: 20120815
  Receipt Date: 20120802
  Transmission Date: 20120928
  Serious: Yes (Life-Threatening)
  Sender: FDA-Public Use
  Company Number: JP-009507513-1208JPN004258

PATIENT

DRUGS (5)
  1. SITAGLIPTIN PHOSPHATE [Suspect]
     Indication: TYPE 2 DIABETES MELLITUS
     Dosage: 50 MG, QD
     Route: 048
     Dates: start: 20100710, end: 20120424
  2. LIPITOR [Concomitant]
     Dosage: UNK
     Dates: start: 20100710, end: 20120424
  3. ACTOS [Concomitant]
     Dosage: UNK
     Dates: start: 20100710, end: 20120424
  4. METFORMIN HCL [Concomitant]
     Dosage: UNK
     Dates: start: 20100710, end: 20120424
  5. AMARYL [Concomitant]
     Dosage: UNK
     Dates: start: 20100710, end: 20120424

REACTIONS (1)
  - NEOPLASM PROGRESSION [None]
